FAERS Safety Report 15415754 (Version 2)
Quarter: 2023Q4

REPORT INFORMATION
  Report Type: Spontaneous
  Country: US (occurrence: US)
  Receive Date: 20180922
  Receipt Date: 20231106
  Transmission Date: 20240110
  Serious: No
  Sender: FDA-Public Use
  Company Number: US-JNJFOC-20180912277

PATIENT
  Age: 12 Year
  Sex: Male

DRUGS (2)
  1. RISPERDAL [Suspect]
     Active Substance: RISPERIDONE
     Indication: Autism spectrum disorder
     Dosage: VARYING DOSES OF 0.25 MG 0.5 MG AND 0.75 MG WITH VARYING FREQUENCIES OF ONCE AND TWICE DAILY
     Route: 048
     Dates: start: 20070327, end: 20071206
  2. RISPERDAL [Suspect]
     Active Substance: RISPERIDONE
     Dosage: VARYING DOSES OF 0.25 MG AND 0.5 MG
     Route: 048
     Dates: start: 20071206, end: 200712

REACTIONS (5)
  - Emotional disorder [Unknown]
  - Gynaecomastia [Unknown]
  - Weight increased [Recovering/Resolving]
  - Sedation [Unknown]
  - Product administration error [Unknown]

NARRATIVE: CASE EVENT DATE: 20070801
